FAERS Safety Report 10337259 (Version 1)
Quarter: 2014Q3

REPORT INFORMATION
  Report Type: Spontaneous
  Country: IT (occurrence: IT)
  Receive Date: 20140723
  Receipt Date: 20140723
  Transmission Date: 20150326
  Serious: Yes (Life-Threatening)
  Sender: FDA-Public Use
  Company Number: IT-TEVA-495140ISR

PATIENT
  Age: 40 Year
  Sex: Female

DRUGS (5)
  1. QUENTIAX [Suspect]
     Active Substance: QUETIAPINE FUMARATE
     Indication: POISONING DELIBERATE
     Dosage: 10 DOSAGE FORMS DAILY;
     Route: 048
     Dates: start: 20140429, end: 20140429
  2. EN [Suspect]
     Active Substance: DELORAZEPAM
     Indication: POISONING DELIBERATE
     Dosage: 10 ML DAILY;
     Route: 048
     Dates: start: 20140429, end: 20140429
  3. EUTIROX 100 MCG [Concomitant]
     Active Substance: LEVOTHYROXINE SODIUM
     Dosage: 1 DOSAGE FORMS DAILY;
     Route: 048
  4. GABAPENTIN. [Suspect]
     Active Substance: GABAPENTIN
     Indication: POISONING DELIBERATE
     Dosage: 16 DOSAGE FORMS DAILY;
     Route: 048
     Dates: start: 20140429, end: 20140429
  5. EUTIROX 75 MCG [Concomitant]
     Active Substance: LEVOTHYROXINE SODIUM
     Dosage: 1 DOSAGE FORMS DAILY;
     Route: 048

REACTIONS (3)
  - Intentional self-injury [Recovering/Resolving]
  - Drug abuse [Recovering/Resolving]
  - Poisoning deliberate [Recovering/Resolving]

NARRATIVE: CASE EVENT DATE: 20140429
